FAERS Safety Report 5408061-8 (Version None)
Quarter: 2007Q3

REPORT INFORMATION
  Report Type: 
  Country: None (occurrence: None)
  Receive Date: 20070808
  Receipt Date: 20070731
  Transmission Date: 20080115
  Serious: Yes (Hospitalization, Other)
  Sender: FDA-Public Use
  Company Number: PHBS2007BE12767

PATIENT

DRUGS (2)
  1. AREDIA [Suspect]
     Indication: BONE PAIN
  2. ZOMETA [Suspect]
     Indication: BONE PAIN
     Dates: start: 20070719

REACTIONS (6)
  - ALANINE AMINOTRANSFERASE INCREASED [None]
  - ASPARTATE AMINOTRANSFERASE INCREASED [None]
  - BLOOD LACTATE DEHYDROGENASE INCREASED [None]
  - HEPATIC ENZYME INCREASED [None]
  - MALAISE [None]
  - PALLOR [None]
